FAERS Safety Report 9348315 (Version 1)
Quarter: 2013Q2

REPORT INFORMATION
  Report Type: Spontaneous
  Country: FR (occurrence: FR)
  Receive Date: 20130614
  Receipt Date: 20130614
  Transmission Date: 20140414
  Serious: Yes (Other)
  Sender: FDA-Public Use
  Company Number: FR-PFIZER INC-2013175841

PATIENT
  Age: 86 Year
  Sex: Female

DRUGS (5)
  1. ALPRESS [Suspect]
     Indication: HYPERTENSION
     Dosage: 2.5 MG, 2X/DAY
     Dates: end: 20130610
  2. HYPERIUM [Suspect]
     Indication: HYPERTENSION
     Dosage: 1 MG, 2X/DAY
     Dates: end: 20130610
  3. FLODIL [Concomitant]
     Dosage: 5 MG, 1X/DAY
  4. FLODIL [Concomitant]
     Dosage: 5 MG, 2X/DAY
  5. COTAREG [Concomitant]
     Dosage: 12.5MG/160MG (1 DF), 1X/DAY, IN THE MORNING

REACTIONS (6)
  - Suicidal ideation [Unknown]
  - Pruritus [Unknown]
  - Fatigue [Unknown]
  - Arthralgia [Unknown]
  - Dry mouth [Unknown]
  - Abdominal pain upper [Unknown]
